FAERS Safety Report 6644677-9 (Version None)
Quarter: 2010Q1

REPORT INFORMATION
  Report Type: 
  Country: None (occurrence: None)
  Receive Date: 20100318
  Receipt Date: 20100318
  Transmission Date: 20100710
  Serious: No
  Sender: FDA-Public Use
  Company Number: None

PATIENT
  Age: 75 Year
  Sex: Male
  Weight: 64 kg

DRUGS (1)
  1. IBUPROFEN [Suspect]
     Indication: PAIN
     Dosage: 200 MG PRN PO
     Route: 048
     Dates: start: 20090401, end: 20090601

REACTIONS (4)
  - ANAEMIA [None]
  - DUODENITIS [None]
  - GASTRITIS [None]
  - HELICOBACTER TEST POSITIVE [None]
